FAERS Safety Report 24852259 (Version 5)
Quarter: 2025Q2

REPORT INFORMATION
  Report Type: Report from Study
  Country: US (occurrence: US)
  Receive Date: 20250116
  Receipt Date: 20250617
  Transmission Date: 20250717
  Serious: Yes (Hospitalization, Other)
  Sender: TAKEDA
  Company Number: US-TAKEDA-2025TUS005033

PATIENT
  Sex: Female

DRUGS (16)
  1. PONATINIB [Suspect]
     Active Substance: PONATINIB
     Indication: Acute lymphocytic leukaemia
  2. PONATINIB [Suspect]
     Active Substance: PONATINIB
     Dosage: 30 MILLIGRAM, QD
  3. PONATINIB [Suspect]
     Active Substance: PONATINIB
     Dosage: 30 MILLIGRAM, QD
  4. PONATINIB [Suspect]
     Active Substance: PONATINIB
     Dosage: 15 MILLIGRAM, QD
  5. PROTONIX [Concomitant]
     Active Substance: PANTOPRAZOLE SODIUM
  6. CALCIUM CHLORIDE\SODIUM CHLORIDE\SODIUM PHOSPHATE, DIBASIC, ANHYDROUS\ [Concomitant]
     Active Substance: CALCIUM CHLORIDE\SODIUM CHLORIDE\SODIUM PHOSPHATE, DIBASIC, ANHYDROUS\SODIUM PHOSPHATE, MONOBASIC, A
  7. LEVAQUIN [Concomitant]
     Active Substance: LEVOFLOXACIN
  8. METOPROLOL SUCCINATE [Concomitant]
     Active Substance: METOPROLOL SUCCINATE
  9. OLANZAPINE [Concomitant]
     Active Substance: OLANZAPINE
  10. AMLODIPINE BESYLATE [Concomitant]
     Active Substance: AMLODIPINE BESYLATE
  11. ACYCLOVIR [Concomitant]
     Active Substance: ACYCLOVIR
  12. ALLOPURINOL [Concomitant]
     Active Substance: ALLOPURINOL
  13. ATOVAQUONE [Concomitant]
     Active Substance: ATOVAQUONE
  14. CHLORHEXIDINE DIACETATE [Concomitant]
     Active Substance: CHLORHEXIDINE DIACETATE
  15. ELIQUIS [Concomitant]
     Active Substance: APIXABAN
  16. BLINCYTO [Concomitant]
     Active Substance: BLINATUMOMAB

REACTIONS (2)
  - Blast cell crisis [Unknown]
  - Hepatic enzyme increased [Unknown]
